FAERS Safety Report 9223468 (Version 2)
Quarter: 2013Q2

REPORT INFORMATION
  Report Type: Spontaneous
  Country: JP (occurrence: JP)
  Receive Date: 20130410
  Receipt Date: 20130420
  Transmission Date: 20140414
  Serious: No
  Sender: FDA-Public Use
  Company Number: JP-ABBOTT-13X-087-1071366-00

PATIENT
  Age: 9 Year
  Sex: Male

DRUGS (4)
  1. KLARICID [Suspect]
     Indication: PRODUCT USED FOR UNKNOWN INDICATION
     Route: 048
     Dates: start: 20130328, end: 20130401
  2. NAUZELIN [Concomitant]
     Indication: PRODUCT USED FOR UNKNOWN INDICATION
     Dates: start: 20130328, end: 20130401
  3. BIOFERMIN [Concomitant]
     Indication: PRODUCT USED FOR UNKNOWN INDICATION
     Dates: start: 20130328, end: 20130401
  4. BIFIDOBACTERIUM [Concomitant]
     Indication: PRODUCT USED FOR UNKNOWN INDICATION

REACTIONS (4)
  - Jaundice [Recovered/Resolved]
  - Haemolysis [Unknown]
  - Haptoglobin decreased [Unknown]
  - Blood bilirubin increased [Unknown]
